FAERS Safety Report 8561443-8 (Version None)
Quarter: 2012Q3

REPORT INFORMATION
  Report Type: 
  Country: None (occurrence: None)
  Receive Date: 20120802
  Receipt Date: 20120718
  Transmission Date: 20120928
  Serious: Yes (Hospitalization)
  Sender: FDA-Public Use
  Company Number: ES-GLAXOSMITHKLINE-B0816659A

PATIENT
  Age: 64 Year
  Sex: Male

DRUGS (5)
  1. PHENOBARBITAL TAB [Concomitant]
     Indication: POST-TRAUMATIC EPILEPSY
     Dosage: 150MG PER DAY
     Route: 048
     Dates: end: 20120707
  2. TOPIRAMATE [Suspect]
     Indication: POST-TRAUMATIC EPILEPSY
     Dosage: 150MG PER DAY
     Route: 048
     Dates: end: 20120629
  3. CLOBAZAM [Concomitant]
     Indication: POST-TRAUMATIC EPILEPSY
     Dosage: 30MG PER DAY
     Route: 048
     Dates: end: 20120707
  4. POTIGA [Suspect]
     Indication: POST-TRAUMATIC EPILEPSY
     Route: 048
     Dates: start: 20120515, end: 20120707
  5. ZEBINIX [Concomitant]

REACTIONS (18)
  - AGITATION [None]
  - CATATONIA [None]
  - HYPOTONIA [None]
  - AKINESIA [None]
  - PSEUDOMEMBRANOUS COLITIS [None]
  - PROTEIN TOTAL INCREASED [None]
  - CONFUSIONAL STATE [None]
  - DISTURBANCE IN SOCIAL BEHAVIOUR [None]
  - SUICIDAL IDEATION [None]
  - FEAR [None]
  - DEPRESSION [None]
  - EMOTIONAL DISORDER [None]
  - ILL-DEFINED DISORDER [None]
  - PNEUMONIA [None]
  - DECREASED APPETITE [None]
  - URINARY RETENTION [None]
  - UNRESPONSIVE TO STIMULI [None]
  - DRUG INTERACTION [None]
